FAERS Safety Report 8112648-1 (Version None)
Quarter: 2012Q1

REPORT INFORMATION
  Report Type: 
  Country: None (occurrence: None)
  Receive Date: 20120203
  Receipt Date: 20120123
  Transmission Date: 20120608
  Serious: Yes (Hospitalization, Other)
  Sender: FDA-Public Use
  Company Number: DE-UCBSA-036650

PATIENT
  Age: 56 Year
  Sex: Male
  Weight: 78 kg

DRUGS (11)
  1. LEFLUNOMIDE [Concomitant]
     Indication: RHEUMATOID ARTHRITIS
     Route: 048
     Dates: start: 20100419
  2. CALCIUM [Concomitant]
     Indication: OSTEOPOROSIS PROPHYLAXIS
     Dates: start: 20030101
  3. LEFLUNOMIDE [Concomitant]
     Route: 048
     Dates: start: 20040501, end: 20100401
  4. EFEROX [Concomitant]
     Indication: HYPOTHYROIDISM
     Route: 048
     Dates: start: 20000401
  5. VITAMIN D [Concomitant]
     Indication: OSTEOPOROSIS PROPHYLAXIS
     Dosage: 1000 IE
     Dates: start: 20030101
  6. CARVEDILOL [Concomitant]
     Indication: HYPERTENSION
     Route: 048
  7. CIMZIA [Suspect]
     Indication: RHEUMATOID ARTHRITIS
     Dosage: SINCE ??/MAR/2011 200 MG EVERY 2 WEEKS
     Route: 058
     Dates: start: 20100915, end: 20111114
  8. PREDNISONE TAB [Concomitant]
     Indication: RHEUMATOID ARTHRITIS
     Route: 048
  9. CARVEDILOL [Concomitant]
     Dates: start: 20030101
  10. TORSEMIDE [Concomitant]
     Indication: HYPERTENSION
     Route: 048
     Dates: start: 20051201
  11. IBUPROFEN [Concomitant]
     Indication: OSTEOARTHRITIS
     Dosage: UP TO 3 X DAY
     Route: 048
     Dates: start: 20100501, end: 20110414

REACTIONS (1)
  - LUNG INFILTRATION [None]
